FAERS Safety Report 10089029 (Version 1)
Quarter: 2014Q2

REPORT INFORMATION
  Report Type: Spontaneous
  Country: US (occurrence: None)
  Receive Date: 20140418
  Receipt Date: 20140418
  Transmission Date: 20141212
  Serious: Yes (Other)
  Sender: FDA-Public Use
  Company Number: None

PATIENT
  Age: 78 Year
  Sex: Female
  Weight: 56.25 kg

DRUGS (11)
  1. METFORMIN [Suspect]
     Indication: TYPE 2 DIABETES MELLITUS
     Dosage: 500 MG, 2 PILLS, TWICE DAILY, BY MOUTH
     Route: 048
     Dates: start: 20140115, end: 20140219
  2. DIOVAN 80MG [Concomitant]
  3. ZETIA 10MG [Concomitant]
  4. GLIMEPIRIDE 1MG [Concomitant]
  5. METFORMIN 500 MG [Concomitant]
  6. BABY ASA [Concomitant]
  7. MULTIVAM [Concomitant]
  8. MAGNESIUM 250MG [Concomitant]
  9. B-12 500MG [Concomitant]
  10. ALEVE [Concomitant]
  11. ADVIL 200 MG [Concomitant]

REACTIONS (3)
  - Rash [None]
  - Skin exfoliation [None]
  - Blood glucose decreased [None]
